FAERS Safety Report 7644851-9 (Version None)
Quarter: 2011Q3

REPORT INFORMATION
  Report Type: 
  Country: None (occurrence: None)
  Receive Date: 20110725
  Receipt Date: 20110711
  Transmission Date: 20111222
  Serious: Yes (Death)
  Sender: FDA-Public Use
  Company Number: SP03819

PATIENT
  Age: 49 Year
  Sex: Male
  Weight: 71.2147 kg

DRUGS (9)
  1. EPZICOM [Suspect]
     Indication: HIV INFECTION
     Dosage: 1 600/300 MG TABLET, (1 IN 1 D), ORAL
     Route: 048
     Dates: start: 20110512, end: 20110630
  2. PSEUDOEPHEDRINE HCL [Concomitant]
  3. FAMCICLOVIR (TABLETS) [Concomitant]
  4. OXYCODONE (TABLETS) [Concomitant]
  5. RITONAVIR [Concomitant]
  6. APRISO [Suspect]
     Indication: HIV INFECTION
     Dosage: 1.5 GM (1.5 GM, 1 IN 1, D), ORAL
     Route: 048
     Dates: start: 20110512, end: 20110630
  7. FLUOXETINE [Concomitant]
  8. LAMOTRIGINE [Concomitant]
  9. ATAZANAVIR [Concomitant]

REACTIONS (1)
  - CARDIAC DISORDER [None]
